FAERS Safety Report 7563035-6 (Version None)
Quarter: 2011Q2

REPORT INFORMATION
  Report Type: 
  Country: None (occurrence: None)
  Receive Date: 20110622
  Receipt Date: 20110614
  Transmission Date: 20111010
  Serious: Yes (Hospitalization, Other)
  Sender: FDA-Public Use
  Company Number: US-ACTELION-A-US2010-38175

PATIENT

DRUGS (2)
  1. TRACLEER [Suspect]
     Indication: PULMONARY ARTERIAL HYPERTENSION
     Dosage: 125 MG, BID
     Route: 048
     Dates: start: 20100223, end: 20100801
  2. COUMADIN [Concomitant]

REACTIONS (5)
  - IRON METABOLISM DISORDER [None]
  - DYSPNOEA [None]
  - ANAEMIA [None]
  - GALLBLADDER OPERATION [None]
  - TRANSFUSION [None]
